FAERS Safety Report 10714380 (Version 1)
Quarter: 2015Q1

REPORT INFORMATION
  Report Type: Spontaneous
  Country: US (occurrence: US)
  Receive Date: 20150115
  Receipt Date: 20150115
  Transmission Date: 20150721
  Serious: No
  Sender: FDA-Public Use
  Company Number: US-ASTELLAS-2014US016560

PATIENT
  Sex: Female

DRUGS (3)
  1. MYRBETRIQ [Suspect]
     Active Substance: MIRABEGRON
     Indication: HYPERTONIC BLADDER
     Route: 048
  2. FLONASE                            /00908302/ [Concomitant]
     Indication: NASAL CONGESTION
     Dosage: UNK UNK, AS NEEDED
     Route: 065
  3. HYDROCODONE [Concomitant]
     Active Substance: HYDROCODONE
     Indication: PRODUCT USED FOR UNKNOWN INDICATION
     Dosage: UNK UNK, UNKNOWN FREQ.
     Route: 065

REACTIONS (8)
  - Pollakiuria [Unknown]
  - Rhinorrhoea [Unknown]
  - Drug ineffective [Unknown]
  - Hypertonic bladder [Unknown]
  - Musculoskeletal discomfort [Unknown]
  - Nasal congestion [Unknown]
  - Nasopharyngitis [Unknown]
  - Urethritis noninfective [Unknown]

NARRATIVE: CASE EVENT DATE: 2014
